FAERS Safety Report 10823325 (Version 2)
Quarter: 2015Q1

REPORT INFORMATION
  Report Type: Report from Study
  Country: US (occurrence: US)
  Receive Date: 20150218
  Receipt Date: 20150328
  Transmission Date: 20150721
  Serious: Yes (Other)
  Sender: FDA-Public Use
  Company Number: US-ABBVIE-14K-163-1305962-00

PATIENT
  Age: 50 Year
  Sex: Female
  Weight: 106.24 kg

DRUGS (1)
  1. HUMIRA [Suspect]
     Active Substance: ADALIMUMAB
     Indication: PSORIASIS
     Route: 058
     Dates: start: 20140723

REACTIONS (10)
  - Alanine aminotransferase increased [Unknown]
  - Injection site pain [Recovered/Resolved]
  - Rhinorrhoea [Recovered/Resolved]
  - Viral infection [Recovered/Resolved]
  - Systemic lupus erythematosus [Not Recovered/Not Resolved]
  - Respiratory tract congestion [Recovered/Resolved]
  - Antinuclear antibody positive [Unknown]
  - Oropharyngeal pain [Recovered/Resolved]
  - Cough [Recovered/Resolved]
  - Arthralgia [Unknown]

NARRATIVE: CASE EVENT DATE: 20140723
